FAERS Safety Report 4850773-9 (Version None)
Quarter: 2005Q4

REPORT INFORMATION
  Report Type: 
  Country: None (occurrence: None)
  Receive Date: 20051212
  Receipt Date: 20051205
  Transmission Date: 20060501
  Serious: Yes (Hospitalization)
  Sender: FDA-Public Use
  Company Number: FR-AVENTIS-200514018FR

PATIENT
  Age: 89 Year
  Sex: Female
  Weight: 60 kg

DRUGS (9)
  1. LASILIX [Suspect]
     Indication: HYPERTENSIVE HEART DISEASE
     Route: 048
     Dates: end: 20041215
  2. TRIATEC [Suspect]
     Indication: HYPERTENSIVE HEART DISEASE
     Route: 048
  3. CORDARONE [Suspect]
     Indication: HYPERTENSIVE HEART DISEASE
     Route: 048
     Dates: end: 20041225
  4. SINTROM [Suspect]
     Indication: ATRIAL FIBRILLATION
     Route: 048
  5. SINTROM [Suspect]
     Indication: ATRIAL FLUTTER
     Route: 048
  6. DEROXAT [Suspect]
     Indication: DYSTHYMIC DISORDER
     Route: 048
     Dates: end: 20041212
  7. AMLOR [Suspect]
     Indication: HYPERTENSIVE HEART DISEASE
     Route: 048
  8. VASTAREL [Concomitant]
     Route: 048
  9. DIFFU K [Concomitant]
     Route: 048

REACTIONS (3)
  - HYPERCAPNIA [None]
  - HYPONATRAEMIA [None]
  - PULMONARY FIBROSIS [None]
